FAERS Safety Report 4768100-4 (Version None)
Quarter: 2005Q3

REPORT INFORMATION
  Report Type: 
  Country: None (occurrence: None)
  Receive Date: 20050912
  Receipt Date: 20050912
  Transmission Date: 20060218
  Serious: Yes (Life-Threatening, Hospitalization)
  Sender: FDA-Public Use
  Company Number: None

PATIENT
  Age: 45 Year
  Sex: Male

DRUGS (2)
  1. VALACYCLOVIR HCL [Suspect]
     Indication: HERPES ZOSTER
     Dates: start: 20050901, end: 20050908
  2. COUMADIN [Concomitant]

REACTIONS (3)
  - DEPRESSION [None]
  - SELF-MEDICATION [None]
  - SUICIDE ATTEMPT [None]
